FAERS Safety Report 15740927 (Version 1)
Quarter: 2018Q4

REPORT INFORMATION
  Report Type: Spontaneous
  Country: US (occurrence: US)
  Receive Date: 20181219
  Receipt Date: 20181219
  Transmission Date: 20190205
  Serious: Yes (Hospitalization)
  Sender: FDA-Public Use
  Company Number: US-JNJFOC-20181221060

PATIENT
  Age: 48 Year
  Sex: Male

DRUGS (1)
  1. INVOKANA [Suspect]
     Active Substance: CANAGLIFLOZIN
     Indication: TYPE 2 DIABETES MELLITUS
     Route: 048
     Dates: start: 201606

REACTIONS (5)
  - Extremity necrosis [Unknown]
  - Toe amputation [Unknown]
  - Dry gangrene [Unknown]
  - Osteomyelitis acute [Unknown]
  - Diabetic foot infection [Unknown]

NARRATIVE: CASE EVENT DATE: 201612
